FAERS Safety Report 13373460 (Version 1)
Quarter: 2017Q1

REPORT INFORMATION
  Report Type: Spontaneous
  Country: US (occurrence: US)
  Receive Date: 20170327
  Receipt Date: 20170327
  Transmission Date: 20170429
  Serious: Yes (Death)
  Sender: FDA-Public Use
  Company Number: US-LPDUSPRD-20170316

PATIENT

DRUGS (10)
  1. DEXAMETHASONE SODIUM PHOSPHATE INJECTION, USP (4901-25) [Suspect]
     Active Substance: DEXAMETHASONE SODIUM PHOSPHATE
     Dosage: UNKNOWN
     Route: 065
  2. CYTARABINE. [Suspect]
     Active Substance: CYTARABINE
     Dosage: UNKNOWN
     Route: 065
  3. PROCARBAZINE [Suspect]
     Active Substance: PROCARBAZINE
     Dosage: UNKNOWN
     Route: 065
  4. PREDNISONE. [Concomitant]
     Active Substance: PREDNISONE
     Dosage: UNKNOWN
     Route: 065
  5. CISPLATIN. [Suspect]
     Active Substance: CISPLATIN
     Dosage: UNKNOWN
     Route: 065
  6. CHLORAMBUCIL [Suspect]
     Active Substance: CHLORAMBUCIL
     Dosage: UNKNOWN
     Route: 065
  7. MECHLORETHAMINE [Suspect]
     Active Substance: MECHLORETHAMINE
     Dosage: UNKNOWN
     Route: 065
  8. CYCLOPHOSPHAMIDE. [Suspect]
     Active Substance: CYCLOPHOSPHAMIDE
     Dosage: UNKNOWN
     Route: 065
  9. VINCRISTINE [Suspect]
     Active Substance: VINCRISTINE
     Dosage: UNKNOWN
     Route: 065
  10. ETOPOSIDE. [Suspect]
     Active Substance: ETOPOSIDE
     Dosage: UNKNOWN

REACTIONS (2)
  - Acute myeloid leukaemia [Fatal]
  - Myelodysplastic syndrome [Fatal]
